FAERS Safety Report 20869156 (Version 1)
Quarter: 2022Q2

REPORT INFORMATION
  Report Type: Spontaneous
  Country: US (occurrence: None)
  Receive Date: 20220520
  Receipt Date: 20220520
  Transmission Date: 20220721
  Serious: No
  Sender: FDA-Public Use
  Company Number: None

PATIENT
  Age: 66 Year
  Sex: Male
  Weight: 72.57 kg

DRUGS (2)
  1. PROPOFOL [Suspect]
     Active Substance: PROPOFOL
  2. Baxter Spectrum IQ Pump [Concomitant]

REACTIONS (2)
  - Device delivery system issue [None]
  - Seizure [None]

NARRATIVE: CASE EVENT DATE: 20220503
